FAERS Safety Report 5442624-9 (Version None)
Quarter: 2007Q3

REPORT INFORMATION
  Report Type: 
  Country: None (occurrence: None)
  Receive Date: 20070904
  Receipt Date: 20070827
  Transmission Date: 20080115
  Serious: Yes (Death, Other)
  Sender: FDA-Public Use
  Company Number: US-SHR-US-2007-032400

PATIENT

DRUGS (4)
  1. CAMPATH [Suspect]
     Indication: WALDENSTROM'S MACROGLOBULINAEMIA
     Dosage: 3/10/30MG
     Route: 042
  2. CAMPATH [Suspect]
     Dosage: 30MG 3XWEEK
     Route: 042
  3. ACYCLOVIR [Concomitant]
     Indication: INFECTION PROPHYLAXIS
  4. BACTRIM [Concomitant]
     Indication: INFECTION PROPHYLAXIS

REACTIONS (2)
  - THROMBOCYTOPENIA [None]
  - VON WILLEBRAND'S DISEASE [None]
